FAERS Safety Report 13855404 (Version 1)
Quarter: 2017Q3

REPORT INFORMATION
  Report Type: Spontaneous
  Country: US (occurrence: US)
  Receive Date: 20170810
  Receipt Date: 20170810
  Transmission Date: 20171127
  Serious: No
  Sender: FDA-Public Use
  Company Number: US-VIFOR (INTERNATIONAL) INC.-VIT-2017-06517

PATIENT
  Sex: Female

DRUGS (9)
  1. LIPITOR [Concomitant]
     Active Substance: ATORVASTATIN CALCIUM
  2. AMLODIPINE BESILATE [Concomitant]
     Active Substance: AMLODIPINE BESYLATE
  3. LEVEMIR [Concomitant]
     Active Substance: INSULIN DETEMIR
  4. ERGOCALCIFEROL. [Concomitant]
     Active Substance: ERGOCALCIFEROL
  5. LASIX [Concomitant]
     Active Substance: FUROSEMIDE
  6. COUMARIN [Concomitant]
     Active Substance: COUMARIN
  7. VELTASSA [Suspect]
     Active Substance: PATIROMER
  8. CALCITRIOL. [Concomitant]
     Active Substance: CALCITRIOL
  9. DOXAZOSIN MESILATE [Concomitant]
     Active Substance: DOXAZOSIN MESYLATE

REACTIONS (4)
  - Swelling [Unknown]
  - Hypertension [Not Recovered/Not Resolved]
  - Fatigue [Unknown]
  - Dizziness [Unknown]
